FAERS Safety Report 5235949-3 (Version None)
Quarter: 2007Q1

REPORT INFORMATION
  Report Type: 
  Country: None (occurrence: None)
  Receive Date: 20070212
  Receipt Date: 20070130
  Transmission Date: 20070707
  Serious: Yes (Other)
  Sender: FDA-Public Use
  Company Number: PHBS2007CN01935

PATIENT
  Age: 24 Year
  Sex: Female

DRUGS (1)
  1. IMATINIB MESYLATE [Suspect]
     Indication: CHRONIC MYELOID LEUKAEMIA
     Dosage: 400 MG, QD
     Dates: start: 20060201, end: 20060601

REACTIONS (6)
  - APLASIA PURE RED CELL [None]
  - BONE MARROW FAILURE [None]
  - HAEMOGLOBIN DECREASED [None]
  - MYELOID MATURATION ARREST [None]
  - PLATELET COUNT DECREASED [None]
  - WHITE BLOOD CELL COUNT DECREASED [None]
